FAERS Safety Report 9252431 (Version 1)
Quarter: 2013Q1

REPORT INFORMATION
  Report Type: Spontaneous
  Country: US (occurrence: None)
  Receive Date: 20130305
  Receipt Date: 20130305
  Transmission Date: 20140127
  Serious: Yes (Hospitalization, Other)
  Sender: FDA-Public Use
  Company Number: 163-21880-12082987

PATIENT
  Age: 95 Year
  Sex: Male

DRUGS (3)
  1. REVLIMID [Suspect]
     Indication: MYELODYSPLASTIC SYNDROME
     Dosage: 7.5 MG, 21 IN 28 D, PO
     Dates: start: 20120813
  2. PROCRIT [Concomitant]
  3. PRILOSEC [Concomitant]

REACTIONS (3)
  - Rectal haemorrhage [None]
  - Platelet count decreased [None]
  - Haemoglobin decreased [None]
